FAERS Safety Report 6355526-0 (Version None)
Quarter: 2009Q3

REPORT INFORMATION
  Report Type: 
  Country: None (occurrence: None)
  Receive Date: 20090914
  Receipt Date: 20090910
  Transmission Date: 20100115
  Serious: Yes (Life-Threatening)
  Sender: FDA-Public Use
  Company Number: PHHY2009DZ38700

PATIENT
  Age: 57 Year
  Sex: Male

DRUGS (3)
  1. TEGRETOL-XR [Suspect]
     Indication: BIPOLAR DISORDER
     Dosage: 400 MG THRICE DAILY
     Route: 048
     Dates: start: 20090516, end: 20090910
  2. HALOPERIDOL [Concomitant]
     Dosage: 4 %
     Dates: start: 19870101
  3. CHLORPROMAZINE [Concomitant]
     Dosage: UNK
     Dates: start: 19870101

REACTIONS (7)
  - ASTHENIA [None]
  - HYPOTENSION [None]
  - LEUKOPENIA [None]
  - LYMPHOCYTOSIS [None]
  - PANCYTOPENIA [None]
  - SYNCOPE [None]
  - THROMBOCYTOPENIA [None]
